FAERS Safety Report 4492137-6 (Version None)
Quarter: 2004Q4

REPORT INFORMATION
  Report Type: 
  Country: None (occurrence: None)
  Receive Date: 20041101
  Receipt Date: 20040910
  Transmission Date: 20050328
  Serious: Yes (Hospitalization, Other)
  Sender: FDA-Public Use
  Company Number: 2003-05905

PATIENT
  Age: 54 Year
  Sex: Male
  Weight: 91.6266 kg

DRUGS (11)
  1. EMTRICITABINE (EMTRICITABINE) [Suspect]
     Indication: HIV INFECTION
     Dosage: 200 MG, ONCE A DAY, ORAL
     Route: 048
     Dates: start: 20021113, end: 20030804
  2. TENOFOVIR DF (TENOFOVIR DISOPROXYL FUMARATE) [Suspect]
     Indication: HIV INFECTION
     Dosage: 200 MG, ONCE A DAY, ORAL
     Route: 048
     Dates: start: 20021113, end: 20030804
  3. KALETRA [Suspect]
     Indication: HIV INFECTION
     Dosage: 800 MG, ONCE A DAY, ORAL
     Route: 048
     Dates: start: 20021113, end: 20030804
  4. TOPROL-XL [Suspect]
     Indication: HYPERTENSION
     Dosage: 50 MG, ONCE A DAY, ORAL
     Route: 048
     Dates: start: 20020101, end: 20030730
  5. AVANDIA [Suspect]
     Indication: DIABETES MELLITUS
     Dosage: TWICE A DAY, ORAL
     Route: 048
     Dates: start: 20030505, end: 20030730
  6. TRICOR [Suspect]
     Indication: HYPERLIPIDAEMIA
     Dosage: 160 MG, ONCE A DAY, ORAL
     Route: 048
     Dates: start: 20030506, end: 20030730
  7. ASPIRIN [Concomitant]
  8. WELLBUTRIN [Concomitant]
  9. TRAZADONE (TRAZODONE) [Concomitant]
  10. TEMAZEPAM [Concomitant]
  11. MULTIVITAMIN [Concomitant]

REACTIONS (13)
  - DIALYSIS [None]
  - GASTROINTESTINAL INFECTION [None]
  - HAEMATEMESIS [None]
  - HELICOBACTER INFECTION [None]
  - NAUSEA [None]
  - NEPHRITIS INTERSTITIAL [None]
  - POLLAKIURIA [None]
  - RENAL DISORDER [None]
  - RENAL INTERSTITIAL FIBROSIS [None]
  - RENAL TUBULAR NECROSIS [None]
  - TUBULOINTERSTITIAL NEPHRITIS [None]
  - ULCER [None]
  - VIRAL INFECTION [None]
